FAERS Safety Report 5923610-9 (Version None)
Quarter: 2008Q3

REPORT INFORMATION
  Report Type: 
  Country: None (occurrence: None)
  Receive Date: 20080909
  Receipt Date: 20080506
  Transmission Date: 20090109
  Serious: Yes (Death, Hospitalization)
  Sender: FDA-Public Use
  Company Number: 163-20785-08040260

PATIENT
  Age: 84 Year
  Sex: Male

DRUGS (4)
  1. THALOMID [Suspect]
     Indication: MULTIPLE MYELOMA
     Dosage: 50 MG, 1 IN 1 D ; 50-200 MG, DAILY
     Dates: start: 20070522, end: 20071001
  2. THALOMID [Suspect]
     Indication: MULTIPLE MYELOMA
     Dosage: 50 MG, 1 IN 1 D ; 50-200 MG, DAILY
     Dates: start: 20071116, end: 20071201
  3. DECADRON [Concomitant]
  4. COUMADIN [Concomitant]

REACTIONS (1)
  - BACTERAEMIA [None]
